FAERS Safety Report 8690807 (Version 2)
Quarter: 2013Q4

REPORT INFORMATION
  Report Type: Spontaneous
  Country: US (occurrence: US)
  Receive Date: 20120728
  Receipt Date: 20131101
  Transmission Date: 20140711
  Serious: No
  Sender: FDA-Public Use
  Company Number: US-009507513-1207USA008569

PATIENT
  Age: 22 Year
  Sex: Female

DRUGS (5)
  1. SAPHRIS [Suspect]
     Indication: BIPOLAR DISORDER
     Dosage: 2.5 MG, QD
     Route: 060
     Dates: end: 20120719
  2. SAPHRIS [Suspect]
     Dosage: 5 MG, QD
     Route: 060
     Dates: end: 20120719
  3. XYZAL [Concomitant]
  4. IBUPROFEN [Concomitant]
  5. KEPPRA [Concomitant]

REACTIONS (2)
  - Sedation [Unknown]
  - Enuresis [Unknown]
